FAERS Safety Report 14202347 (Version 10)
Quarter: 2018Q4

REPORT INFORMATION
  Report Type: Report from Study
  Country: US (occurrence: US)
  Receive Date: 20171117
  Receipt Date: 20181228
  Transmission Date: 20190204
  Serious: Yes (Hospitalization, Other)
  Sender: FDA-Public Use
  Company Number: US-ACTELION-A-NJ2017-158837

PATIENT
  Age: 56 Year
  Sex: Female
  Weight: 88.44 kg

DRUGS (12)
  1. UPTRAVI [Suspect]
     Active Substance: SELEXIPAG
     Dosage: 200 MCG, BID
     Route: 048
     Dates: start: 20170817
  2. UPTRAVI [Suspect]
     Active Substance: SELEXIPAG
     Indication: PULMONARY HYPERTENSION
     Dosage: 1000 MCG IN AM, 800 MCG IN PM
     Route: 048
     Dates: start: 20170817
  3. UPTRAVI [Suspect]
     Active Substance: SELEXIPAG
     Dosage: 800 MCG IN AM, 600 MCG IN PM
     Route: 048
  4. UPTRAVI [Suspect]
     Active Substance: SELEXIPAG
     Dosage: 1400 MCG, BID
     Route: 048
  5. SILDENAFIL CITRATE. [Concomitant]
     Active Substance: SILDENAFIL CITRATE
  6. AMLODIPINE [Concomitant]
     Active Substance: AMLODIPINE BESYLATE
  7. OXYGEN. [Concomitant]
     Active Substance: OXYGEN
     Dosage: 3 L, UNK
  8. UPTRAVI [Suspect]
     Active Substance: SELEXIPAG
     Dosage: 600 MCG IN AM, 400 MCG IN PM
     Route: 048
  9. UPTRAVI [Suspect]
     Active Substance: SELEXIPAG
     Dosage: 1600 MCG IN AM, 1400 MCG IN PM
     Route: 048
  10. UPTRAVI [Suspect]
     Active Substance: SELEXIPAG
     Dosage: 1600 MCG, BID
     Route: 048
  11. OXYGEN. [Concomitant]
     Active Substance: OXYGEN
     Dosage: UNK L, UNK
  12. UPTRAVI [Suspect]
     Active Substance: SELEXIPAG
     Dosage: 400 MCG, BID
     Route: 048

REACTIONS (50)
  - Abdominal cavity drainage [Unknown]
  - Headache [Unknown]
  - Pain [Recovering/Resolving]
  - Heart rate decreased [Unknown]
  - Haematochezia [Unknown]
  - Basedow^s disease [Unknown]
  - White blood cell count decreased [Unknown]
  - Abdominal pain [Unknown]
  - Transfusion [Recovering/Resolving]
  - Neck pain [Unknown]
  - Blood pressure systolic increased [Unknown]
  - Oxygen saturation decreased [Unknown]
  - Faeces discoloured [Unknown]
  - Dyspnoea [Unknown]
  - Myalgia [Unknown]
  - Flushing [Recovering/Resolving]
  - Pain in jaw [Unknown]
  - Chest pain [Unknown]
  - Diarrhoea [Unknown]
  - Gastrointestinal disorder [Unknown]
  - Post procedural complication [Recovering/Resolving]
  - Post procedural haemorrhage [Recovering/Resolving]
  - Gastrointestinal haemorrhage [Unknown]
  - Eye swelling [Unknown]
  - Asthenia [Unknown]
  - Abdominal discomfort [Unknown]
  - Red blood cell count decreased [Unknown]
  - Apathy [Unknown]
  - Impaired gastric emptying [Unknown]
  - Ascites [Unknown]
  - Hospitalisation [Unknown]
  - Haemorrhoids [Unknown]
  - Weight decreased [Unknown]
  - Pain in extremity [Unknown]
  - Dizziness [Unknown]
  - Abnormal faeces [Unknown]
  - Decreased appetite [Unknown]
  - Walking distance test [Unknown]
  - Intra-abdominal haemorrhage [Unknown]
  - Abdominal distension [Unknown]
  - Back pain [Unknown]
  - Tremor [Unknown]
  - Platelet count decreased [Unknown]
  - Fatigue [Unknown]
  - Fibrin D dimer increased [Unknown]
  - Peripheral swelling [Unknown]
  - Joint swelling [Unknown]
  - Dry eye [Unknown]
  - Malaise [Unknown]
  - Nasopharyngitis [Unknown]

NARRATIVE: CASE EVENT DATE: 20171101
